FAERS Safety Report 6532085-0 (Version None)
Quarter: 2010Q1

REPORT INFORMATION
  Report Type: 
  Country: None (occurrence: None)
  Receive Date: 20100107
  Receipt Date: 20100107
  Transmission Date: 20100710
  Serious: Yes (Other)
  Sender: FDA-Public Use
  Company Number: None

PATIENT
  Age: 37 Year
  Sex: Female
  Weight: 74.8435 kg

DRUGS (4)
  1. YAZ [Suspect]
     Indication: CONTRACEPTION
     Dosage: ONCE DAILY PO, 3-4 YEARS
     Route: 048
  2. YAZ [Suspect]
     Indication: MENSTRUATION IRREGULAR
     Dosage: ONCE DAILY PO, 3-4 YEARS
     Route: 048
  3. OCELLA [Suspect]
     Indication: CONTRACEPTION
     Dosage: ONCE DAILY PO, 1-2 YEARS
     Route: 048
  4. OCELLA [Suspect]
     Indication: MENSTRUATION IRREGULAR
     Dosage: ONCE DAILY PO, 1-2 YEARS
     Route: 048

REACTIONS (1)
  - MENINGIOMA [None]
